FAERS Safety Report 9804030 (Version 2)
Quarter: 2015Q3

REPORT INFORMATION
  Report Type: Spontaneous
  Country: US (occurrence: US)
  Receive Date: 20140108
  Receipt Date: 20150721
  Transmission Date: 20151125
  Serious: No
  Sender: FDA-Public Use
  Company Number: US-GILEAD-2011-0036253

PATIENT
  Age: 30 Year
  Sex: Female

DRUGS (1)
  1. CAYSTON [Suspect]
     Active Substance: AZTREONAM
     Indication: CYSTIC FIBROSIS
     Route: 055
     Dates: start: 20101226, end: 20110106

REACTIONS (4)
  - Throat irritation [Recovered/Resolved]
  - Chest discomfort [Recovered/Resolved]
  - Cough [Recovered/Resolved]
  - Dry throat [Recovered/Resolved]

NARRATIVE: CASE EVENT DATE: 20110101
